FAERS Safety Report 16348213 (Version 4)
Quarter: 2019Q2

REPORT INFORMATION
  Report Type: Spontaneous
  Country: GB (occurrence: GB)
  Receive Date: 20190523
  Receipt Date: 20190619
  Transmission Date: 20190711
  Serious: Yes (Other)
  Sender: FDA-Public Use
  Company Number: GB-JNJFOC-20190527311

PATIENT
  Sex: Male
  Weight: 100 kg

DRUGS (1)
  1. SIMPONI [Suspect]
     Active Substance: GOLIMUMAB
     Indication: ANKYLOSING SPONDYLITIS
     Route: 058

REACTIONS (4)
  - Off label use [Unknown]
  - Cellulitis [Not Recovered/Not Resolved]
  - Incorrect dose administered [Unknown]
  - Deep vein thrombosis [Not Recovered/Not Resolved]
